FAERS Safety Report 7213675-9 (Version None)
Quarter: 2010Q4

REPORT INFORMATION
  Report Type: 
  Country: None (occurrence: None)
  Receive Date: 20101126
  Receipt Date: 20091120
  Transmission Date: 20110411
  Serious: Yes (Other)
  Sender: FDA-Public Use
  Company Number: WAES 0911USA04160

PATIENT
  Age: 56 Year
  Sex: Female

DRUGS (1)
  1. FOSAMAX [Suspect]
     Dosage: PO
     Route: 048
     Dates: end: 20091116

REACTIONS (4)
  - BONE DENSITY DECREASED [None]
  - GINGIVAL DISORDER [None]
  - OSTEONECROSIS [None]
  - TOOTH INFECTION [None]
